FAERS Safety Report 16295963 (Version 1)
Quarter: 2019Q2

REPORT INFORMATION
  Report Type: Spontaneous
  Country: MX (occurrence: MX)
  Receive Date: 20190510
  Receipt Date: 20190510
  Transmission Date: 20190711
  Serious: Yes (Other)
  Sender: FDA-Public Use
  Company Number: MX-BEH-2019102064

PATIENT
  Age: 4 Year
  Sex: Female
  Weight: 15.5 kg

DRUGS (5)
  1. SANDOGLOBULINA [Suspect]
     Active Substance: HUMAN IMMUNOGLOBULIN G
     Indication: KAWASAKI^S DISEASE
     Dosage: 30 G, SINGLE
     Route: 042
     Dates: start: 20190427, end: 20190428
  2. ANAPROX [Concomitant]
     Active Substance: NAPROXEN SODIUM
     Indication: PYREXIA
  3. ASPIRINA [Concomitant]
     Active Substance: ASPIRIN
     Indication: KAWASAKI^S DISEASE
     Dosage: 190 MG, QID, EVERY 6 H
     Route: 048
     Dates: start: 20190427
  4. METAMIZOLE [Concomitant]
     Active Substance: METAMIZOLE
     Indication: PYREXIA
     Dosage: 3 ML, SINGLE
     Route: 048
     Dates: start: 20190426
  5. ANAPROX [Concomitant]
     Active Substance: NAPROXEN SODIUM
     Indication: SKIN IRRITATION

REACTIONS (5)
  - Tachycardia [Recovered/Resolved]
  - Livedo reticularis [Recovered/Resolved]
  - Cyanosis [Recovered/Resolved]
  - Chills [Recovered/Resolved]
  - Pyrexia [Recovered/Resolved]

NARRATIVE: CASE EVENT DATE: 20190427
